FAERS Safety Report 7060869-1 (Version None)
Quarter: 2010Q4

REPORT INFORMATION
  Report Type: 
  Country: None (occurrence: None)
  Receive Date: 20101025
  Receipt Date: 20101012
  Transmission Date: 20110411
  Serious: Yes (Hospitalization, Other)
  Sender: FDA-Public Use
  Company Number: US-ELI_LILLY_AND_COMPANY-US201008003918

PATIENT
  Sex: Female

DRUGS (6)
  1. HUMALOG MIX 75/25 [Suspect]
     Indication: TYPE 2 DIABETES MELLITUS
     Dosage: 20 U, EACH MORNING
     Dates: start: 20100429
  2. HUMALOG MIX 75/25 [Suspect]
     Dosage: 15 U, EACH EVENING
     Dates: start: 20100429
  3. HUMALOG MIX 75/25 [Suspect]
     Dosage: 20 U, EACH EVENING
     Dates: end: 20100317
  4. HUMALOG MIX 75/25 [Suspect]
     Dosage: 15 U, EACH EVENING
     Dates: end: 20100317
  5. HUMULIN R [Suspect]
     Indication: TYPE 2 DIABETES MELLITUS
     Dosage: UNK, AS NEEDED
     Dates: start: 20100317
  6. LANTUS [Concomitant]
     Dates: start: 20100317, end: 20100429

REACTIONS (6)
  - BREAST CANCER [None]
  - CARDIAC OPERATION [None]
  - CHRONIC OBSTRUCTIVE PULMONARY DISEASE [None]
  - DIABETES MELLITUS INADEQUATE CONTROL [None]
  - OSTEOMYELITIS [None]
  - PERIPHERAL VASCULAR DISORDER [None]
